FAERS Safety Report 21824093 (Version 1)
Quarter: 2023Q1

REPORT INFORMATION
  Report Type: Spontaneous
  Country: CN (occurrence: CN)
  Receive Date: 20230105
  Receipt Date: 20230105
  Transmission Date: 20230418
  Serious: Yes (Other)
  Sender: FDA-Public Use
  Company Number: None

PATIENT
  Age: 60 Year
  Sex: Female
  Weight: 50 kg

DRUGS (4)
  1. CYCLOPHOSPHAMIDE [Suspect]
     Active Substance: CYCLOPHOSPHAMIDE
     Indication: Breast cancer female
     Dosage: 0.8 G, QD, DILUTED WITH 50 ML OF 0.9% SODIUM CHLORIDE, AT 10:08 HOURS
     Route: 041
     Dates: start: 20221129, end: 20221129
  2. SODIUM CHLORIDE [Suspect]
     Active Substance: SODIUM CHLORIDE
     Indication: Medication dilution
     Dosage: 50 ML, QD, USED TO DILUTE 0.8 G CYCLOPHOSPHAMIDE, AT 10:08 HOURS
     Route: 041
     Dates: start: 20221129, end: 20221129
  3. SODIUM CHLORIDE [Suspect]
     Active Substance: SODIUM CHLORIDE
     Dosage: 100 ML, QD, USED TO DILUTE 60 MG EPIRUBICIN HYDROCHLORIDE, AFTER 10:31 ON 29-NOV-2022 AND ON 30-NOV-
     Route: 041
     Dates: start: 20221129, end: 20221130
  4. EPIRUBICIN HYDROCHLORIDE [Suspect]
     Active Substance: EPIRUBICIN HYDROCHLORIDE
     Indication: Breast cancer female
     Dosage: 60 MG, QD, DILUTED WITH 100 ML OF 0.9% SODIUM CHLORIDE, AFTER 10:31 ON 29-NOV-2022 AND ON 30-NOV-202
     Route: 041
     Dates: start: 20221129, end: 20221130

REACTIONS (2)
  - White blood cell count decreased [Recovered/Resolved]
  - Neutrophil count decreased [Recovering/Resolving]

NARRATIVE: CASE EVENT DATE: 20221208
